FAERS Safety Report 21264146 (Version 1)
Quarter: 2022Q3

REPORT INFORMATION
  Report Type: Spontaneous
  Country: IT (occurrence: IT)
  Receive Date: 20220829
  Receipt Date: 20220829
  Transmission Date: 20221027
  Serious: Yes (Other)
  Sender: FDA-Public Use
  Company Number: IT-UCBSA-2022049092

PATIENT
  Sex: Female

DRUGS (4)
  1. KEPPRA [Suspect]
     Active Substance: LEVETIRACETAM
     Indication: Product used for unknown indication
     Dosage: UNK
  2. NIAPRAZINE [Concomitant]
     Active Substance: NIAPRAZINE
     Indication: Sleep disorder
  3. ETHOSUXIMIDE [Concomitant]
     Active Substance: ETHOSUXIMIDE
     Indication: Seizure
  4. VALPROIC ACID [Concomitant]
     Active Substance: VALPROIC ACID
     Indication: Seizure

REACTIONS (7)
  - Seizure [Recovering/Resolving]
  - Drop attacks [Unknown]
  - Intentional self-injury [Unknown]
  - Myoclonus [Unknown]
  - Aggression [Unknown]
  - Psychomotor hyperactivity [Unknown]
  - Therapeutic product effect incomplete [Unknown]
